FAERS Safety Report 18349539 (Version 1)
Quarter: 2020Q4

REPORT INFORMATION
  Report Type: Spontaneous
  Country: DE (occurrence: DE)
  Receive Date: 20201006
  Receipt Date: 20201006
  Transmission Date: 20210114
  Serious: Yes (Other)
  Sender: FDA-Public Use
  Company Number: DE-PFIZER INC-2020380335

PATIENT
  Sex: Male

DRUGS (2)
  1. XALKORI [Suspect]
     Active Substance: CRIZOTINIB
     Dosage: UNK
  2. OSIMERTINIB. [Suspect]
     Active Substance: OSIMERTINIB
     Dosage: UNK

REACTIONS (2)
  - Disease progression [Unknown]
  - Ascites [Unknown]
